FAERS Safety Report 24581366 (Version 1)
Quarter: 2024Q4

REPORT INFORMATION
  Report Type: Spontaneous
  Country: CH (occurrence: CH)
  Receive Date: 20241105
  Receipt Date: 20241105
  Transmission Date: 20250115
  Serious: Yes (Other)
  Sender: PFIZER
  Company Number: None

PATIENT
  Age: 41 Year
  Sex: Male

DRUGS (68)
  1. CYTARABINE [Suspect]
     Active Substance: CYTARABINE
     Indication: Precursor T-lymphoblastic lymphoma/leukaemia
     Dosage: 40 MG, 1X/DAY
     Route: 037
     Dates: start: 20240521, end: 20240521
  2. CYTARABINE [Suspect]
     Active Substance: CYTARABINE
     Dosage: 40 MG, 1X/DAY
     Route: 037
     Dates: start: 20240524, end: 20240524
  3. CYTARABINE [Suspect]
     Active Substance: CYTARABINE
     Dosage: 40 MG, 1X/DAY
     Route: 037
     Dates: start: 20240527, end: 20240527
  4. CYTARABINE [Suspect]
     Active Substance: CYTARABINE
     Dosage: 40 MG, 1X/DAY
     Route: 037
     Dates: start: 20240530, end: 20240530
  5. CYTARABINE [Suspect]
     Active Substance: CYTARABINE
     Dosage: 40 MG, 1X/DAY
     Route: 037
     Dates: start: 20240603, end: 20240603
  6. CYTARABINE [Suspect]
     Active Substance: CYTARABINE
     Dosage: 40 MG, 1X/DAY
     Route: 037
     Dates: start: 20240606, end: 20240606
  7. CYTARABINE [Suspect]
     Active Substance: CYTARABINE
     Dosage: 40 MG, 1X/DAY
     Route: 037
     Dates: start: 20240716, end: 20240716
  8. CYTARABINE [Suspect]
     Active Substance: CYTARABINE
     Dosage: 40 MG, 1X/DAY
     Route: 037
     Dates: start: 20240726, end: 20240726
  9. CYTARABINE [Suspect]
     Active Substance: CYTARABINE
     Dosage: 40 MG, 1X/DAY
     Route: 037
     Dates: start: 20240809, end: 20240809
  10. CYTARABINE [Suspect]
     Active Substance: CYTARABINE
     Dosage: 2000 MG/M2, 2X/DAY
     Route: 040
     Dates: start: 20240628, end: 20240629
  11. METHOTREXATE SODIUM [Suspect]
     Active Substance: METHOTREXATE SODIUM
     Indication: Precursor T-lymphoblastic lymphoma/leukaemia
     Dosage: 15 MG, 1X/DAY
     Route: 037
     Dates: start: 20240517, end: 20240517
  12. METHOTREXATE SODIUM [Suspect]
     Active Substance: METHOTREXATE SODIUM
     Dosage: 15 MG, 1X/DAY
     Route: 037
     Dates: start: 20240521, end: 20240521
  13. METHOTREXATE SODIUM [Suspect]
     Active Substance: METHOTREXATE SODIUM
     Dosage: 15 MG, 1X/DAY
     Route: 037
     Dates: start: 20240524, end: 20240524
  14. METHOTREXATE SODIUM [Suspect]
     Active Substance: METHOTREXATE SODIUM
     Dosage: 15 MG, 1X/DAY
     Route: 037
     Dates: start: 20240527, end: 20240527
  15. METHOTREXATE SODIUM [Suspect]
     Active Substance: METHOTREXATE SODIUM
     Dosage: 15 MG, 1X/DAY
     Route: 037
     Dates: start: 20240530, end: 20240530
  16. METHOTREXATE SODIUM [Suspect]
     Active Substance: METHOTREXATE SODIUM
     Dosage: 15 MG, 1X/DAY
     Route: 037
     Dates: start: 20240603, end: 20240603
  17. METHOTREXATE SODIUM [Suspect]
     Active Substance: METHOTREXATE SODIUM
     Dosage: 15 MG, 1X/DAY
     Route: 037
     Dates: start: 20240606, end: 20240606
  18. METHOTREXATE SODIUM [Suspect]
     Active Substance: METHOTREXATE SODIUM
     Dosage: 15 MG, 1X/DAY
     Route: 037
     Dates: start: 20240716, end: 20240716
  19. METHOTREXATE SODIUM [Suspect]
     Active Substance: METHOTREXATE SODIUM
     Dosage: 15 MG, 1X/DAY
     Route: 037
     Dates: start: 20240726, end: 20240726
  20. METHOTREXATE SODIUM [Suspect]
     Active Substance: METHOTREXATE SODIUM
     Dosage: 15 MG, 1X/DAY
     Route: 037
     Dates: start: 20240809, end: 20240809
  21. METHOTREXATE [Suspect]
     Active Substance: METHOTREXATE
     Indication: Precursor T-lymphoblastic lymphoma/leukaemia
     Dosage: 4500 MG/M2, 1X/DAY
     Route: 040
     Dates: start: 20240713, end: 20240713
  22. METHOTREXATE [Suspect]
     Active Substance: METHOTREXATE
     Dosage: 500 MG/M2, 1X/DAY
     Route: 040
     Dates: start: 20240714, end: 20240714
  23. METHOTREXATE [Suspect]
     Active Substance: METHOTREXATE
     Dosage: 44 MG, 1X/DAY
     Route: 040
     Dates: start: 20240727, end: 20240727
  24. METHOTREXATE [Suspect]
     Active Substance: METHOTREXATE
     Dosage: 44 MG, 1X/DAY
     Route: 040
     Dates: start: 20240810, end: 20240810
  25. VINCRISTINE [Suspect]
     Active Substance: VINCRISTINE
     Indication: Precursor T-lymphoblastic lymphoma/leukaemia
     Dosage: 2 MG, 1X/DAY
     Route: 040
     Dates: start: 20240523, end: 20240523
  26. VINCRISTINE [Suspect]
     Active Substance: VINCRISTINE
     Dosage: 2 MG, 1X/DAY
     Route: 040
     Dates: start: 20240530, end: 20240530
  27. VINCRISTINE [Suspect]
     Active Substance: VINCRISTINE
     Dosage: 2 MG, 1X/DAY
     Route: 040
     Dates: start: 20240606, end: 20240606
  28. VINCRISTINE [Suspect]
     Active Substance: VINCRISTINE
     Dosage: 2 MG, 1X/DAY
     Route: 040
     Dates: start: 20240613, end: 20240613
  29. VINCRISTINE [Suspect]
     Active Substance: VINCRISTINE
     Dosage: 2 MG, 1X/DAY
     Route: 040
     Dates: start: 20240713, end: 20240713
  30. CYCLOPHOSPHAMIDE [Suspect]
     Active Substance: CYCLOPHOSPHAMIDE
     Indication: Precursor T-lymphoblastic lymphoma/leukaemia
     Dosage: DAY 1, DT = 2600 MG
     Route: 040
     Dates: start: 20240523, end: 20240523
  31. CYCLOPHOSPHAMIDE [Suspect]
     Active Substance: CYCLOPHOSPHAMIDE
     Dosage: DAY 15, DT = 2600 MG
     Route: 040
     Dates: start: 20240606, end: 20240606
  32. CYCLOPHOSPHAMIDE [Suspect]
     Active Substance: CYCLOPHOSPHAMIDE
     Dosage: DAY 1 - DAY 2: DOSE TOTAL = 880 MG
     Route: 040
     Dates: start: 20240727, end: 20240728
  33. CYCLOPHOSPHAMIDE [Suspect]
     Active Substance: CYCLOPHOSPHAMIDE
     Dosage: DAY 1 - DAY 2: DOSE TOTAL = 880 MG
     Route: 040
     Dates: start: 20240810, end: 20240811
  34. DAUNORUBICIN [Concomitant]
     Active Substance: DAUNORUBICIN
     Dosage: 155 MG, 1X/DAY (DAY 1 TO DAY 3)
     Dates: start: 20240523, end: 20240525
  35. DAUNORUBICIN [Concomitant]
     Active Substance: DAUNORUBICIN
     Dosage: 100 MG (DAY 15 TO DAY 16)
     Dates: start: 20240606, end: 20240607
  36. METHYLPREDNISOLONE [Concomitant]
     Active Substance: METHYLPREDNISOLONE
     Dosage: 40 MG, 1X/DAY
     Route: 037
     Dates: start: 20240521, end: 20240521
  37. METHYLPREDNISOLONE [Concomitant]
     Active Substance: METHYLPREDNISOLONE
     Dosage: 40 MG, 1X/DAY
     Route: 037
     Dates: start: 20240524, end: 20240524
  38. METHYLPREDNISOLONE [Concomitant]
     Active Substance: METHYLPREDNISOLONE
     Dosage: 40 MG, 1X/DAY
     Route: 037
     Dates: start: 20240527, end: 20240527
  39. METHYLPREDNISOLONE [Concomitant]
     Active Substance: METHYLPREDNISOLONE
     Dosage: 40 MG, 1X/DAY
     Route: 037
     Dates: start: 20240530, end: 20240530
  40. METHYLPREDNISOLONE [Concomitant]
     Active Substance: METHYLPREDNISOLONE
     Dosage: 40 MG, 1X/DAY
     Route: 037
     Dates: start: 20240603, end: 20240603
  41. METHYLPREDNISOLONE [Concomitant]
     Active Substance: METHYLPREDNISOLONE
     Dosage: 40 MG, 1X/DAY
     Route: 037
     Dates: start: 20240606, end: 20240606
  42. METHYLPREDNISOLONE [Concomitant]
     Active Substance: METHYLPREDNISOLONE
     Dosage: 40 MG, 1X/DAY
     Route: 037
     Dates: start: 20240716, end: 20240716
  43. METHYLPREDNISOLONE [Concomitant]
     Active Substance: METHYLPREDNISOLONE
     Dosage: 40 MG, 1X/DAY
     Route: 037
     Dates: start: 20240726, end: 20240726
  44. METHYLPREDNISOLONE [Concomitant]
     Active Substance: METHYLPREDNISOLONE
     Dosage: 40 MG, 1X/DAY
     Route: 037
     Dates: start: 20240809, end: 20240809
  45. MESNA [Concomitant]
     Active Substance: MESNA
     Dosage: UNK
     Dates: start: 20240523, end: 20240523
  46. MESNA [Concomitant]
     Active Substance: MESNA
     Dosage: UNK
     Dates: start: 20240606, end: 20240606
  47. MESNA [Concomitant]
     Active Substance: MESNA
     Dosage: 800 MG/M2, 1X/DAY (DAY 1-2)
     Route: 040
     Dates: start: 20240727, end: 20240728
  48. MESNA [Concomitant]
     Active Substance: MESNA
     Dosage: 800 MG/M2, 1X/DAY (DAY 1-2)
     Route: 040
     Dates: start: 20240810, end: 20240811
  49. ASPARAGINASE [Concomitant]
     Active Substance: ASPARAGINASE
     Dosage: DAY 20, DAY 22, DAY 24, DAY 26, DAY 28; DT = 50000 UI
     Dates: start: 20240612, end: 20240620
  50. DEXAMETHASONE S/PH [Concomitant]
     Dosage: 10 MG, 2X/DAY (DAY1 TO DAY 2)
     Dates: start: 20240628, end: 20240629
  51. FILGRASTIM [Concomitant]
     Active Substance: FILGRASTIM
     Dosage: 5 UG/KG, 2X/DAY (DAY 8 TO DAY12)
     Dates: start: 20240705, end: 20240709
  52. LEUCOVORIN CALCIUM [Concomitant]
     Active Substance: LEUCOVORIN CALCIUM
     Dosage: 25 MG, 2X/DAY (DAY 2)
     Dates: start: 20240714, end: 20240714
  53. LEUCOVORIN CALCIUM [Concomitant]
     Active Substance: LEUCOVORIN CALCIUM
     Dosage: 25 MG 5X/DAY (DAY 3- DAY 4)
     Dates: start: 20240715, end: 20240716
  54. MERCAPTOPURINE [Concomitant]
     Active Substance: MERCAPTOPURINE
     Dosage: 60 MG/M2, 1X/DAY (DAY 1-DAY 7)
     Dates: start: 20240713, end: 20240720
  55. ETOPOPHOS [Concomitant]
     Active Substance: ETOPOSIDE PHOSPHATE
     Dosage: DT = 132 MG, DAY 1-2
     Dates: start: 20240727, end: 20240728
  56. ETOPOPHOS [Concomitant]
     Active Substance: ETOPOSIDE PHOSPHATE
     Dosage: DT = 132 MG, DAY 1-2
     Dates: start: 20240810, end: 20240811
  57. ONDANSETRON [Concomitant]
     Active Substance: ONDANSETRON
     Dosage: UNK
  58. ENOXAPARIN SODIUM [Concomitant]
     Active Substance: ENOXAPARIN SODIUM
     Dosage: UNK
  59. AMPHOTERICIN B [Concomitant]
     Active Substance: AMPHOTERICIN B
     Dosage: UNK
  60. CETIRIZINE [Concomitant]
     Active Substance: CETIRIZINE HYDROCHLORIDE
     Dosage: UNK
  61. MAGALDRATE [Concomitant]
     Active Substance: MAGALDRATE
     Dosage: UNK
  62. OXAZEPAM [Concomitant]
     Active Substance: OXAZEPAM
     Dosage: UNK
  63. ACETAMINOPHEN [Concomitant]
     Active Substance: ACETAMINOPHEN
     Dosage: UNK
  64. TRAMADOL [Concomitant]
     Active Substance: TRAMADOL
     Dosage: UNK
  65. VALACYCLOVIR HYDROCHLORIDE [Concomitant]
     Active Substance: VALACYCLOVIR HYDROCHLORIDE
     Dosage: UNK
  66. THIAMINE HYDROCHLORIDE [Concomitant]
     Active Substance: THIAMINE HYDROCHLORIDE
     Dosage: UNK
  67. VITAMIN D3 [Concomitant]
     Active Substance: CHOLECALCIFEROL
     Dosage: UNK
  68. VITAMINE B COMPLEXE [Concomitant]
     Dosage: UNK

REACTIONS (9)
  - Muscular weakness [Not Recovered/Not Resolved]
  - Hypoaesthesia [Not Recovered/Not Resolved]
  - Back pain [Not Recovered/Not Resolved]
  - Pain in extremity [Not Recovered/Not Resolved]
  - Livedo reticularis [Not Recovered/Not Resolved]
  - Polyneuropathy [Not Recovered/Not Resolved]
  - Intervertebral disc degeneration [Unknown]
  - Spinal stenosis [Unknown]
  - Neurotoxicity [Unknown]

NARRATIVE: CASE EVENT DATE: 20240712
